FAERS Safety Report 5252568-3 (Version None)
Quarter: 2007Q1

REPORT INFORMATION
  Report Type: 
  Country: None (occurrence: None)
  Receive Date: 20070227
  Receipt Date: 20070227
  Transmission Date: 20070707
  Serious: Yes (Other)
  Sender: FDA-Public Use
  Company Number: None

PATIENT
  Age: 59 Year
  Sex: Female
  Weight: 65.7716 kg

DRUGS (1)
  1. SERTRALINE [Suspect]
     Indication: PANIC DISORDER
     Dosage: 100 MG  ONCE DAILY  PO
     Route: 048
     Dates: start: 20061219, end: 20070223

REACTIONS (6)
  - ABNORMAL DREAMS [None]
  - DYSPEPSIA [None]
  - HEART RATE INCREASED [None]
  - PALPITATIONS [None]
  - PANIC ATTACK [None]
  - THERAPEUTIC RESPONSE UNEXPECTED WITH DRUG SUBSTITUTION [None]
